FAERS Safety Report 6446842-2 (Version None)
Quarter: 2009Q4

REPORT INFORMATION
  Report Type: 
  Country: None (occurrence: None)
  Receive Date: 20091119
  Receipt Date: 20091116
  Transmission Date: 20100525
  Serious: Yes (Death)
  Sender: FDA-Public Use
  Company Number: DE-JNJFOC-20091104230

PATIENT
  Age: 88 Year
  Sex: Female

DRUGS (12)
  1. RISPERDAL [Suspect]
     Route: 048
     Dates: start: 20080227
  2. RISPERDAL [Suspect]
     Indication: DRUG USE FOR UNKNOWN INDICATION
     Route: 048
     Dates: start: 20080227
  3. ISOPTIN [Suspect]
     Indication: DRUG USE FOR UNKNOWN INDICATION
     Route: 048
  4. DELIX [Suspect]
     Indication: DRUG USE FOR UNKNOWN INDICATION
     Route: 048
  5. FUROSEMID [Suspect]
     Indication: DRUG USE FOR UNKNOWN INDICATION
     Route: 048
  6. DOMINAL [Suspect]
     Route: 048
  7. DOMINAL [Suspect]
     Route: 048
  8. DOMINAL [Suspect]
     Route: 048
  9. DOMINAL [Suspect]
     Indication: DRUG USE FOR UNKNOWN INDICATION
     Route: 048
  10. TRIARESE [Suspect]
     Indication: DRUG USE FOR UNKNOWN INDICATION
     Route: 048
     Dates: end: 20080206
  11. CIPROHEXAL [Concomitant]
     Route: 048
     Dates: start: 20080304
  12. MOTILIUM [Concomitant]
     Route: 048
     Dates: start: 20080305

REACTIONS (2)
  - DEATH [None]
  - LUNG INFILTRATION [None]
